FAERS Safety Report 13410135 (Version 4)
Quarter: 2017Q2

REPORT INFORMATION
  Report Type: Report from Study
  Country: JP (occurrence: JP)
  Receive Date: 20170406
  Receipt Date: 20170605
  Transmission Date: 20170830
  Serious: Yes (Other)
  Sender: FDA-Public Use
  Company Number: PHJP2017JP010810

PATIENT
  Age: 83 Year
  Sex: Female
  Weight: 47.5 kg

DRUGS (7)
  1. COSENTYX [Suspect]
     Active Substance: SECUKINUMAB
     Indication: PUSTULAR PSORIASIS
     Dosage: 300 MG, QW PER ADMINISTRATION.
     Route: 058
     Dates: start: 20170302
  2. COSENTYX [Suspect]
     Active Substance: SECUKINUMAB
     Dosage: 150 MG, QW PER ADMINISTRATION
     Route: 058
     Dates: start: 20170330
  3. COSENTYX [Suspect]
     Active Substance: SECUKINUMAB
     Dosage: 150 MG, QW PER ADMINISTRATION
     Route: 058
     Dates: start: 20170323
  4. COSENTYX [Suspect]
     Active Substance: SECUKINUMAB
     Dosage: 300 MG, QW PER ADMINISTRATION.
     Route: 058
     Dates: start: 20170316
  5. ETRETINATE [Concomitant]
     Active Substance: ETRETINATE
     Indication: PUSTULAR PSORIASIS
     Dosage: 20 MG, UNK
     Route: 048
     Dates: start: 20170123, end: 20170301
  6. CICLOSPORIN [Concomitant]
     Active Substance: CYCLOSPORINE
     Indication: PUSTULAR PSORIASIS
     Dosage: 50 MG, UNK
     Route: 048
     Dates: end: 20170123
  7. COSENTYX [Suspect]
     Active Substance: SECUKINUMAB
     Dosage: 300 MG, QW PER ADMINISTRATION.
     Route: 058
     Dates: start: 20170309

REACTIONS (3)
  - Pancytopenia [Recovered/Resolved]
  - Intestinal obstruction [Unknown]
  - Platelet count decreased [Recovering/Resolving]

NARRATIVE: CASE EVENT DATE: 20170316
